FAERS Safety Report 5829752-0 (Version None)
Quarter: 2008Q3

REPORT INFORMATION
  Report Type: 
  Country: None (occurrence: None)
  Receive Date: 20080729
  Receipt Date: 20080718
  Transmission Date: 20090109
  Serious: Yes (Hospitalization)
  Sender: FDA-Public Use
  Company Number: 2008BI016705

PATIENT
  Age: 42 Year
  Sex: Female
  Weight: 72.5755 kg

DRUGS (5)
  1. TYSABRI [Suspect]
     Indication: MULTIPLE SCLEROSIS
     Dosage: 300 MG; QM; IV
     Route: 042
     Dates: start: 20071201
  2. CYMBALTA [Concomitant]
  3. KLONOPIN [Concomitant]
  4. GABITRIL [Concomitant]
  5. TOPAMAX [Concomitant]

REACTIONS (1)
  - CONVERSION DISORDER [None]
